FAERS Safety Report 17738467 (Version 3)
Quarter: 2025Q2

REPORT INFORMATION
  Report Type: Report from Study
  Country: DE (occurrence: DE)
  Receive Date: 20200504
  Receipt Date: 20250622
  Transmission Date: 20250716
  Serious: Yes (Other)
  Sender: ROCHE
  Company Number: DE-ROCHE-2579959

PATIENT
  Age: 41 Year
  Sex: Female
  Weight: 64.0 kg

DRUGS (9)
  1. OCREVUS [Suspect]
     Active Substance: OCRELIZUMAB
     Indication: Relapsing multiple sclerosis
     Route: 042
     Dates: start: 20190812, end: 20190827
  2. RANITIDINE HYDROCHLORIDE [Concomitant]
     Active Substance: RANITIDINE HYDROCHLORIDE
     Indication: Prophylaxis
     Dates: start: 201907
  3. PREDNISOLONE [Concomitant]
     Active Substance: PREDNISOLONE
     Indication: Prophylaxis
     Route: 042
     Dates: start: 20190812, end: 20190812
  4. PREDNISOLONE [Concomitant]
     Active Substance: PREDNISOLONE
     Route: 042
     Dates: start: 20210315
  5. EBASTINE [Concomitant]
     Active Substance: EBASTINE
     Indication: Prophylaxis
     Dates: start: 201907
  6. CHOLECALCIFEROL [Concomitant]
     Active Substance: CHOLECALCIFEROL
     Indication: Vitamin supplementation
     Route: 048
     Dates: start: 20200226
  7. MODERNA COVID-19 VACCINE [Concomitant]
     Active Substance: ELASOMERAN
     Indication: COVID-19 prophylaxis
     Route: 030
     Dates: start: 20220112, end: 20220112
  8. MODERNA COVID-19 VACCINE [Concomitant]
     Active Substance: ELASOMERAN
     Route: 030
     Dates: start: 20211207, end: 20211207
  9. LYRICA [Concomitant]
     Active Substance: PREGABALIN
     Indication: Multiple sclerosis relapse prophylaxis
     Route: 048
     Dates: start: 20210408

REACTIONS (1)
  - Pyelitis [Recovered/Resolved]

NARRATIVE: CASE EVENT DATE: 20200101
